FAERS Safety Report 9279121 (Version 1)
Quarter: 2013Q2

REPORT INFORMATION
  Report Type: Spontaneous
  Country: US (occurrence: US)
  Receive Date: 20130508
  Receipt Date: 20130508
  Transmission Date: 20140414
  Serious: No
  Sender: FDA-Public Use
  Company Number: US-BAYER-2013-055368

PATIENT
  Sex: 0

DRUGS (2)
  1. ALEVE CAPLET [Suspect]
  2. BAYER ASPIRIN REGIMEN ADULT LOW STRENGTH [Suspect]
     Indication: BACK PAIN

REACTIONS (1)
  - Drug effect incomplete [None]
